FAERS Safety Report 6228245-9 (Version None)
Quarter: 2009Q2

REPORT INFORMATION
  Report Type: 
  Country: None (occurrence: None)
  Receive Date: 20090610
  Receipt Date: 20090610
  Transmission Date: 20091009
  Serious: Yes (Other)
  Sender: FDA-Public Use
  Company Number: None

PATIENT
  Sex: Female
  Weight: 61.2356 kg

DRUGS (2)
  1. CEFTRIAXONE 1GM [Suspect]
     Indication: MASTOIDITIS
     Dosage: 1GM QD IV
     Route: 042
     Dates: start: 20090530, end: 20090607
  2. CEFTRIAXONE 1GM [Suspect]
     Indication: OTITIS MEDIA
     Dosage: 1GM QD IV
     Route: 042
     Dates: start: 20090530, end: 20090607

REACTIONS (3)
  - EYE SWELLING [None]
  - LIP SWELLING [None]
  - URTICARIA [None]
